FAERS Safety Report 21197804 (Version 2)
Quarter: 2022Q3

REPORT INFORMATION
  Report Type: Report from Study
  Country: PH (occurrence: PH)
  Receive Date: 20220810
  Receipt Date: 20220831
  Transmission Date: 20221027
  Serious: Yes (Death, Hospitalization, Other)
  Sender: FDA-Public Use
  Company Number: PH-002147023-NVSC2022PH173019

PATIENT

DRUGS (1)
  1. RUXOLITINIB [Suspect]
     Active Substance: RUXOLITINIB
     Indication: Product used for unknown indication
     Dosage: UNK UNK, OTHER
     Route: 048

REACTIONS (10)
  - Haemorrhage intracranial [Fatal]
  - Subarachnoid haemorrhage [Fatal]
  - Cerebral haemorrhage [Fatal]
  - Blood creatinine abnormal [Unknown]
  - Depressed level of consciousness [Unknown]
  - Dysphagia [Unknown]
  - Pyrexia [Unknown]
  - Herpes simplex [Unknown]
  - Pneumonia [Unknown]
  - Acute myeloid leukaemia refractory [Unknown]

NARRATIVE: CASE EVENT DATE: 20220730
